FAERS Safety Report 9436042 (Version 1)
Quarter: 2013Q3

REPORT INFORMATION
  Report Type: Spontaneous
  Country: PL (occurrence: PL)
  Receive Date: 20130801
  Receipt Date: 20130801
  Transmission Date: 20140515
  Serious: Yes (Hospitalization)
  Sender: FDA-Public Use
  Company Number: PL-ACTAVIS-2013-13593

PATIENT
  Age: 55 Year
  Sex: Female

DRUGS (1)
  1. DOCETAXEL (UNKNOWN) [Suspect]
     Indication: NEOPLASM MALIGNANT
     Dosage: 140 MG, UNKNOWN
     Route: 042
     Dates: start: 20130508, end: 20130508

REACTIONS (3)
  - Erythema [Recovered/Resolved]
  - Hyperhidrosis [Recovered/Resolved]
  - Dyspnoea [Recovered/Resolved]
